FAERS Safety Report 9605081 (Version 2)
Quarter: 2013Q4

REPORT INFORMATION
  Report Type: Spontaneous
  Country: JP (occurrence: JP)
  Receive Date: 20131008
  Receipt Date: 20131021
  Transmission Date: 20140711
  Serious: Yes (Other)
  Sender: FDA-Public Use
  Company Number: JP-PFIZER INC-2013283094

PATIENT
  Age: 11 Year
  Sex: Male
  Weight: 22.7 kg

DRUGS (2)
  1. GROWJECT [Suspect]
     Indication: GROWTH HORMONE DEFICIENCY
     Dosage: 0.175 MG/KG, WEEKLY
  2. GROWJECT [Suspect]
     Dosage: 0.25 MG/KG, WEEKLY

REACTIONS (1)
  - Osteogenesis imperfecta [Unknown]
